FAERS Safety Report 15315307 (Version 1)
Quarter: 2018Q3

REPORT INFORMATION
  Report Type: Spontaneous
  Country: US (occurrence: US)
  Receive Date: 20180824
  Receipt Date: 20180824
  Transmission Date: 20181010
  Serious: No
  Sender: FDA-Public Use
  Company Number: US-SA-2018SA233573

PATIENT
  Sex: Female

DRUGS (6)
  1. DIPHENOXYLATE/ATROPINE [Concomitant]
     Active Substance: ATROPINE\DIPHENOXYLATE
  2. AUBAGIO [Suspect]
     Active Substance: TERIFLUNOMIDE
     Dosage: 1 DF, QD
     Route: 048
  3. TRILYTE [Concomitant]
     Active Substance: POLYETHYLENE GLYCOL 3350\POTASSIUM CHLORIDE\SODIUM BICARBONATE\SODIUM CHLORIDE
  4. SUPRENZA [Concomitant]
     Active Substance: PHENTERMINE HYDROCHLORIDE
     Dosage: 15 MG
  5. CELEBREX [Concomitant]
     Active Substance: CELECOXIB
  6. NEXIUM [ESOMEPRAZOLE MAGNESIUM] [Concomitant]

REACTIONS (3)
  - Cough [Not Recovered/Not Resolved]
  - Dry throat [Not Recovered/Not Resolved]
  - Throat irritation [Not Recovered/Not Resolved]
